FAERS Safety Report 7610351-5 (Version None)
Quarter: 2011Q3

REPORT INFORMATION
  Report Type: 
  Country: None (occurrence: None)
  Receive Date: 20110715
  Receipt Date: 20100719
  Transmission Date: 20111222
  Serious: No
  Sender: FDA-Public Use
  Company Number: A0871142A

PATIENT
  Age: 66 Year
  Sex: Male

DRUGS (3)
  1. OLUX [Suspect]
     Indication: ECZEMA
     Dosage: 1APP SINGLE DOSE
     Route: 061
     Dates: start: 20100712, end: 20100712
  2. MOISTURIZER [Concomitant]
  3. CLOBETASOL PROPIONATE [Suspect]
     Indication: ECZEMA
     Route: 061

REACTIONS (1)
  - APPLICATION SITE PAIN [None]
